FAERS Safety Report 14061882 (Version 1)
Quarter: 2017Q4

REPORT INFORMATION
  Report Type: Spontaneous
  Country: US (occurrence: US)
  Receive Date: 20171009
  Receipt Date: 20171009
  Transmission Date: 20180321
  Serious: No
  Sender: FDA-Public Use
  Company Number: US-TEVA-731415USA

PATIENT
  Age: 52 Year
  Sex: Female
  Weight: 86 kg

DRUGS (3)
  1. TEMAZEPAM. [Suspect]
     Active Substance: TEMAZEPAM
     Dosage: 30 MILLIGRAM DAILY; AT NIGHT
     Route: 065
     Dates: start: 20170109, end: 201701
  2. ALLERGY MEDICINES [Concomitant]
     Active Substance: UNSPECIFIED INGREDIENT
     Dates: end: 201701
  3. MUCINEX [Concomitant]
     Active Substance: GUAIFENESIN
     Dates: end: 201701

REACTIONS (4)
  - Fear [Not Recovered/Not Resolved]
  - Feeling drunk [Not Recovered/Not Resolved]
  - Somnolence [Not Recovered/Not Resolved]
  - Loss of personal independence in daily activities [Not Recovered/Not Resolved]

NARRATIVE: CASE EVENT DATE: 20170109
